FAERS Safety Report 14510747 (Version 1)
Quarter: 2018Q1

REPORT INFORMATION
  Report Type: Spontaneous
  Country: US (occurrence: US)
  Receive Date: 20180208
  Receipt Date: 20180208
  Transmission Date: 20180509
  Serious: Yes (Hospitalization)
  Sender: FDA-Public Use
  Company Number: None

PATIENT
  Age: 61 Year
  Sex: Male
  Weight: 102 kg

DRUGS (2)
  1. DASABUVIR/OMBITASVIR/PARITAPREVIR/RITONAVIR [Suspect]
     Active Substance: DASABUVIR\OMBITASVIR\PARITAPREVIR\RITONAVIR
     Indication: PSYCHOTIC DISORDER
     Route: 048
     Dates: start: 20151223, end: 20160308
  2. RIBAVIRIN. [Suspect]
     Active Substance: RIBAVIRIN
     Dates: start: 20151223, end: 20160308

REACTIONS (6)
  - Agitation [None]
  - Psychotic disorder [None]
  - Suicidal ideation [None]
  - Homicidal ideation [None]
  - Depressed mood [None]
  - Poor quality sleep [None]

NARRATIVE: CASE EVENT DATE: 20160220
